FAERS Safety Report 10886052 (Version 1)
Quarter: 2015Q1

REPORT INFORMATION
  Report Type: Spontaneous
  Country: US (occurrence: US)
  Receive Date: 20150304
  Receipt Date: 20150304
  Transmission Date: 20150721
  Serious: Yes (Death, Hospitalization, Congenital Anomaly, Other)
  Sender: FDA-Public Use
  Company Number: US-APOTEX-2015AP006983

PATIENT
  Age: 0 Day
  Sex: Female

DRUGS (2)
  1. IFOSFAMIDE. [Suspect]
     Active Substance: IFOSFAMIDE
     Indication: HODGKIN^S DISEASE
     Route: 065
  2. PAXIL [Suspect]
     Active Substance: PAROXETINE HYDROCHLORIDE
     Indication: DEPRESSION
     Route: 064

REACTIONS (42)
  - Metastasis [Unknown]
  - Respiratory distress [Unknown]
  - Foetal exposure during pregnancy [Unknown]
  - Hypoplastic left heart syndrome [Unknown]
  - Hodgkin^s disease [Fatal]
  - Neutropenia [Unknown]
  - Mediastinitis [Unknown]
  - Heart disease congenital [Fatal]
  - Heart transplant rejection [Fatal]
  - Pain [Unknown]
  - Acute kidney injury [Unknown]
  - Cardiac failure congestive [Unknown]
  - Hypoxia [Recovered/Resolved]
  - Cardiogenic shock [Unknown]
  - Device related infection [Unknown]
  - Cytomegalovirus infection [Unknown]
  - Influenza [Unknown]
  - Anaemia [Unknown]
  - Atrioventricular septal defect [Unknown]
  - Cardiac disorder [Unknown]
  - Epstein-Barr virus infection [Unknown]
  - Middle lobe syndrome [Unknown]
  - Toxicity to various agents [Unknown]
  - Atrial septal defect [Unknown]
  - Treatment noncompliance [Unknown]
  - Breech presentation [Unknown]
  - Effusion [Unknown]
  - Post transplant lymphoproliferative disorder [Fatal]
  - Sepsis [Unknown]
  - Cerebrovascular accident [Fatal]
  - Cerebral infarction [Unknown]
  - Cardiac arrest [Unknown]
  - Metabolic acidosis [Unknown]
  - Patent ductus arteriosus [Unknown]
  - Hepatosplenomegaly [Unknown]
  - Multiple congenital abnormalities [Unknown]
  - Aortic valve atresia [Unknown]
  - Pneumonia [Unknown]
  - Tachypnoea [Unknown]
  - Coronary artery disease [Unknown]
  - Sudden death [Fatal]
  - Mitral valve atresia [Unknown]

NARRATIVE: CASE EVENT DATE: 19990304
